FAERS Safety Report 6086762-9 (Version None)
Quarter: 2009Q1

REPORT INFORMATION
  Report Type: 
  Country: None (occurrence: None)
  Receive Date: 20090217
  Receipt Date: 20090202
  Transmission Date: 20090719
  Serious: Yes (Death, Other)
  Sender: FDA-Public Use
  Company Number: CHPA2009US01741

PATIENT
  Age: 17 Year
  Sex: Male

DRUGS (2)
  1. DEXTROMETHORPHAN HYDROBROMIDE AND CHLORPHENIRAMINE MALEATE [Suspect]
     Dosage: UNK UNK ORAL
     Route: 048
  2. ACETAMINOPHEN [Concomitant]

REACTIONS (19)
  - ACCIDENTAL DEATH [None]
  - ACCIDENTAL OVERDOSE [None]
  - ALANINE AMINOTRANSFERASE INCREASED [None]
  - ASPARTATE AMINOTRANSFERASE INCREASED [None]
  - BLOOD PH DECREASED [None]
  - BRAIN OEDEMA [None]
  - CARDIAC ARREST [None]
  - CEREBRAL INFARCTION [None]
  - COMPLETED SUICIDE [None]
  - DRUG ABUSE [None]
  - DRUG TOXICITY [None]
  - OEDEMA [None]
  - PCO2 INCREASED [None]
  - PO2 INCREASED [None]
  - PULMONARY CONGESTION [None]
  - PULMONARY OEDEMA [None]
  - PUPIL FIXED [None]
  - SINUS TACHYCARDIA [None]
  - UNRESPONSIVE TO STIMULI [None]
